FAERS Safety Report 4719746-0 (Version None)
Quarter: 2005Q3

REPORT INFORMATION
  Report Type: 
  Country: None (occurrence: None)
  Receive Date: 20050721
  Receipt Date: 20040713
  Transmission Date: 20060218
  Serious: No
  Sender: FDA-Public Use
  Company Number: US-GLAXOSMITHKLINE-A0518067A

PATIENT
  Age: 74 Year
  Sex: Male

DRUGS (7)
  1. AVANDIA [Suspect]
     Dosage: 4MG PER DAY
     Route: 048
     Dates: start: 20040707
  2. GLUCOTROL [Concomitant]
  3. ZOCOR [Concomitant]
  4. TOPROL-XL [Concomitant]
  5. MULTIVITAMIN [Concomitant]
  6. MAXZIDE [Concomitant]
  7. COZAAR [Concomitant]

REACTIONS (1)
  - BLOOD GLUCOSE INCREASED [None]
